FAERS Safety Report 9093132 (Version 1)
Quarter: 2013Q1

REPORT INFORMATION
  Report Type: Spontaneous
  Country: KR (occurrence: KR)
  Receive Date: 20130201
  Receipt Date: 20130201
  Transmission Date: 20140127
  Serious: Yes (Other)
  Sender: FDA-Public Use
  Company Number: KR-PFIZER INC-2013035284

PATIENT
  Sex: 0

DRUGS (1)
  1. DETRUSITOL SR [Suspect]
     Dosage: 4 MG, UNK
     Route: 048

REACTIONS (3)
  - Drug prescribing error [Unknown]
  - Urinary retention [Not Recovered/Not Resolved]
  - Condition aggravated [Not Recovered/Not Resolved]
